FAERS Safety Report 10977149 (Version 1)
Quarter: 2015Q2

REPORT INFORMATION
  Report Type: Spontaneous
  Country: US (occurrence: US)
  Receive Date: 20150402
  Receipt Date: 20150402
  Transmission Date: 20150821
  Serious: No
  Sender: FDA-Public Use
  Company Number: US-ASTRAZENECA-2006BM06220

PATIENT
  Age: 735 Month
  Sex: Female
  Weight: 81.6 kg

DRUGS (7)
  1. BYETTA [Suspect]
     Active Substance: EXENATIDE
     Indication: TYPE 2 DIABETES MELLITUS
     Route: 058
  2. METFORMIN [Concomitant]
     Active Substance: METFORMIN HYDROCHLORIDE
     Indication: TYPE 2 DIABETES MELLITUS
     Route: 048
  3. BYETTA [Suspect]
     Active Substance: EXENATIDE
     Indication: TYPE 2 DIABETES MELLITUS
     Route: 058
     Dates: start: 20150301, end: 20150320
  4. METFORMIN [Concomitant]
     Active Substance: METFORMIN HYDROCHLORIDE
     Indication: TYPE 2 DIABETES MELLITUS
     Route: 048
     Dates: start: 200512
  5. EXENATIDE [Concomitant]
     Active Substance: EXENATIDE
     Dosage: 10MCG PEN
  6. CADUET [Concomitant]
     Active Substance: AMLODIPINE BESYLATE\ATORVASTATIN CALCIUM
     Indication: PROTEINURIA
     Route: 048
     Dates: start: 200604
  7. BYETTA [Suspect]
     Active Substance: EXENATIDE
     Indication: TYPE 2 DIABETES MELLITUS
     Dosage: 0.25 MG/ML, 5UG, TWO TIMES A DAY
     Route: 058
     Dates: start: 200604

REACTIONS (5)
  - Intentional product misuse [Not Recovered/Not Resolved]
  - Weight decreased [Not Recovered/Not Resolved]
  - Vision blurred [Unknown]
  - Therapeutic response unexpected [Not Recovered/Not Resolved]
  - Drug dose omission [Not Recovered/Not Resolved]

NARRATIVE: CASE EVENT DATE: 200604
